FAERS Safety Report 8052921-9 (Version None)
Quarter: 2012Q1

REPORT INFORMATION
  Report Type: 
  Country: None (occurrence: None)
  Receive Date: 20120118
  Receipt Date: 20120112
  Transmission Date: 20120608
  Serious: Yes (Other)
  Sender: FDA-Public Use
  Company Number: PHHY2011BR95687

PATIENT
  Sex: Male

DRUGS (8)
  1. VINPOCETINE [Concomitant]
     Indication: CEREBRAL CIRCULATORY FAILURE
     Dosage: 1 DF(5 MG), DAILY, Q12H
  2. EXFORGE [Suspect]
     Indication: HYPERTENSION
     Dosage: 1 DF (320/10 MG), DAILY (AT 7AM)
     Dates: start: 20110908
  3. SOMALGIN [Concomitant]
     Indication: ANTIPLATELET THERAPY
     Dosage: 1 DF(100 MG), QD (AFTER LUNCH)
  4. CAPTOPRIL [Concomitant]
  5. DOXAZOSIN MESYLATE [Concomitant]
     Indication: URINARY RETENTION
     Dosage: 1 DF (2 MG), QD (AT NIGHT)
  6. ATENOLOL [Concomitant]
     Indication: HYPERTENSION
     Dosage: 1 DF(50 MG), Q12H (ONE AT 10AM AND ONE AT 10PM)
  7. ASPIRIN [Concomitant]
     Indication: ANTIPLATELET THERAPY
     Dosage: 1 DF(100 MG), QD (AFTER LUNCH)
  8. ROSUVASTATIN CALCIUM [Concomitant]
     Indication: BLOOD CHOLESTEROL
     Dosage: 1 DF(20 MG), QD (AT NIGHT)

REACTIONS (3)
  - BLOOD URIC ACID INCREASED [None]
  - OEDEMA PERIPHERAL [None]
  - DRUG INEFFECTIVE [None]
